FAERS Safety Report 26034692 (Version 1)
Quarter: 2025Q4

REPORT INFORMATION
  Report Type: Spontaneous
  Country: US (occurrence: None)
  Receive Date: 20251111
  Receipt Date: 20251111
  Transmission Date: 20260118
  Serious: Yes (Disabling)
  Sender: FDA-CTU
  Company Number: None

PATIENT
  Age: 72 Year
  Sex: Male
  Weight: 72 kg

DRUGS (7)
  1. LEVOFLOXACIN [Suspect]
     Active Substance: LEVOFLOXACIN
     Indication: Antibiotic therapy
     Dosage: 10 CAPSULE(S) ONCE DAILY ORAL
     Route: 048
     Dates: start: 20250823, end: 20250825
  2. abiraterone (Zytiga) 250mg [Concomitant]
  3. prednisone .5mg once daily [Concomitant]
  4. lorazepam 0.5 once daily [Concomitant]
  5. ESOMEPRAZOLE [Concomitant]
     Active Substance: ESOMEPRAZOLE
  6. magnesium 40mg (generic nexium) once daily [Concomitant]
  7. Men^s Daily multivitamin [Concomitant]

REACTIONS (3)
  - Tendon pain [None]
  - Pain in extremity [None]
  - Peripheral swelling [None]

NARRATIVE: CASE EVENT DATE: 20250823
